FAERS Safety Report 4659155-6 (Version None)
Quarter: 2005Q2

REPORT INFORMATION
  Report Type: 
  Country: None (occurrence: None)
  Receive Date: 20050511
  Receipt Date: 20050503
  Transmission Date: 20051028
  Serious: Yes (Hospitalization)
  Sender: FDA-Public Use
  Company Number: US-JNJFOC-20050501265

PATIENT
  Sex: Female
  Weight: 78.02 kg

DRUGS (6)
  1. ELMIRON [Suspect]
     Route: 049
  2. ELMIRON [Suspect]
     Indication: CYSTITIS INTERSTITIAL
     Route: 049
  3. ELMIRON [Suspect]
     Route: 043
  4. HEPARIN [Suspect]
     Indication: CYSTITIS INTERSTITIAL
     Route: 043
  5. SYNTHROID [Concomitant]
     Indication: HYPOTHYROIDISM
  6. VERAPAMIL [Concomitant]
     Indication: BLOOD PRESSURE
     Route: 049

REACTIONS (8)
  - HEPATITIS [None]
  - HEPATOMEGALY [None]
  - INCREASED TENDENCY TO BRUISE [None]
  - PAIN [None]
  - PLATELET COUNT DECREASED [None]
  - SPLENOMEGALY [None]
  - WEIGHT INCREASED [None]
  - WHITE BLOOD CELL COUNT DECREASED [None]
